FAERS Safety Report 8500616-7 (Version None)
Quarter: 2012Q3

REPORT INFORMATION
  Report Type: 
  Country: None (occurrence: None)
  Receive Date: 20120710
  Receipt Date: 20120626
  Transmission Date: 20120928
  Serious: No
  Sender: FDA-Public Use
  Company Number: US-ASTRAZENECA-2012SE43309

PATIENT
  Age: 39 Year
  Sex: Female
  Weight: 88.5 kg

DRUGS (4)
  1. SINGULAIR [Concomitant]
  2. SYNTHROID [Concomitant]
     Indication: THYROID DISORDER
  3. NEXIUM [Suspect]
     Indication: GASTROOESOPHAGEAL REFLUX DISEASE
     Route: 048
     Dates: start: 20120501
  4. ADVAIR DISKUS 100/50 [Concomitant]
     Indication: ASTHMA

REACTIONS (8)
  - INTENTIONAL DRUG MISUSE [None]
  - HEADACHE [None]
  - GASTROOESOPHAGEAL REFLUX DISEASE [None]
  - EYE PRURITUS [None]
  - FOAMING AT MOUTH [None]
  - DARK CIRCLES UNDER EYES [None]
  - OESOPHAGITIS [None]
  - SINUS CONGESTION [None]
